FAERS Safety Report 5822143-8 (Version None)
Quarter: 2008Q3

REPORT INFORMATION
  Report Type: 
  Country: None (occurrence: None)
  Receive Date: 20080725
  Receipt Date: 20080716
  Transmission Date: 20090109
  Serious: Yes (Other)
  Sender: FDA-Public Use
  Company Number: PHHY2008MX14528

PATIENT

DRUGS (1)
  1. EXELON [Suspect]
     Indication: DEMENTIA ALZHEIMER'S TYPE
     Dosage: 4.6 MG, QD
     Route: 062
     Dates: start: 20080625, end: 20080708

REACTIONS (4)
  - AGGRESSION [None]
  - AGNOSIA [None]
  - HALLUCINATION [None]
  - PSYCHOMOTOR HYPERACTIVITY [None]
